FAERS Safety Report 5264392-6 (Version None)
Quarter: 2007Q1

REPORT INFORMATION
  Report Type: 
  Country: None (occurrence: None)
  Receive Date: 20070309
  Receipt Date: 20070302
  Transmission Date: 20070707
  Serious: Yes (Hospitalization)
  Sender: FDA-Public Use
  Company Number: 37553

PATIENT
  Age: 51 Year
  Sex: Male
  Weight: 99.7913 kg

DRUGS (4)
  1. IBUPROFEN [Suspect]
     Indication: PAIN
     Dosage: 200MG/4 TABLETS/ORAL
     Route: 048
     Dates: start: 20070223
  2. ATENOLOL [Concomitant]
  3. PERCOCET [Concomitant]
  4. TRAZODONE HCL [Concomitant]

REACTIONS (6)
  - DIZZINESS [None]
  - FALL [None]
  - FATIGUE [None]
  - LOSS OF CONSCIOUSNESS [None]
  - MEDICATION ERROR [None]
  - OVERDOSE [None]
